FAERS Safety Report 24035979 (Version 1)
Quarter: 2024Q3

REPORT INFORMATION
  Report Type: Spontaneous
  Country: US (occurrence: US)
  Receive Date: 20240701
  Receipt Date: 20240701
  Transmission Date: 20241017
  Serious: Yes (Hospitalization, Other)
  Sender: DR REDDYS
  Company Number: US-DRL-USA-LIT/USA/24/0009237

PATIENT
  Age: 33 Year
  Sex: Male

DRUGS (2)
  1. IBUPROFEN [Suspect]
     Active Substance: IBUPROFEN
     Indication: Arthralgia
  2. IBUPROFEN [Suspect]
     Active Substance: IBUPROFEN
     Indication: Dyspnoea

REACTIONS (3)
  - Haemothorax [Unknown]
  - Pleural effusion [Unknown]
  - Drug ineffective for unapproved indication [Unknown]
